FAERS Safety Report 8217467-3 (Version None)
Quarter: 2012Q1

REPORT INFORMATION
  Report Type: 
  Country: None (occurrence: None)
  Receive Date: 20120301
  Receipt Date: 20110829
  Transmission Date: 20120608
  Serious: Yes (Hospitalization, Other)
  Sender: FDA-Public Use
  Company Number: 296062USA

PATIENT
  Age: 81 Year
  Sex: Female

DRUGS (1)
  1. METFORMIN HCL [Suspect]
     Dosage: 500 MG

REACTIONS (3)
  - HYPERHIDROSIS [None]
  - CONFUSIONAL STATE [None]
  - BLOOD GLUCOSE DECREASED [None]
